FAERS Safety Report 4367505-3 (Version None)
Quarter: 2004Q2

REPORT INFORMATION
  Report Type: 
  Country: None (occurrence: None)
  Receive Date: 20040520
  Receipt Date: 20040505
  Transmission Date: 20050107
  Serious: Yes (Hospitalization)
  Sender: FDA-Public Use
  Company Number: SAGL-ZLB/04/11/FRA

PATIENT
  Age: 13 Year
  Sex: Male

DRUGS (7)
  1. SANDOGLOBULIN [Suspect]
     Indication: TRANSPLANT
     Dosage: 15 G, I.V.
     Route: 042
  2. SANDOGLOBULIN [Suspect]
  3. VFEND (ANTIFUNGALS FOR SYSTEMIC USE) [Concomitant]
  4. PREDNISOLONE [Concomitant]
  5. CASPOFUNGINE (ANTIFUNGALS FOR TOPICAL USE) [Concomitant]
  6. AMLODIPINE BESYLATE [Concomitant]
  7. NEORAL [Concomitant]

REACTIONS (2)
  - BLOOD PRESSURE INCREASED [None]
  - BODY TEMPERATURE INCREASED [None]
